FAERS Safety Report 5339751-3 (Version None)
Quarter: 2007Q2

REPORT INFORMATION
  Report Type: 
  Country: None (occurrence: None)
  Receive Date: 20070531
  Receipt Date: 20070518
  Transmission Date: 20071010
  Serious: Yes (Other)
  Sender: FDA-Public Use
  Company Number: PHEH2007US05853

PATIENT
  Age: 44 Year
  Sex: Female

DRUGS (7)
  1. ZELNORM [Suspect]
     Indication: CONSTIPATION
     Dosage: 6 MG, BID
     Route: 048
     Dates: start: 20070101, end: 20070420
  2. ZELNORM [Suspect]
     Route: 048
  3. ZOLOFT [Concomitant]
     Indication: DEPRESSION
     Route: 048
  4. CLONAZEPAM [Concomitant]
     Indication: ANXIETY
     Dosage: 0.5 MG, 4 TABLETS QD
  5. LITHIUM CARBONATE [Concomitant]
     Indication: AFFECTIVE DISORDER
  6. TRILEPTAL [Concomitant]
     Indication: AFFECTIVE DISORDER
  7. PRILOSEC [Concomitant]
     Indication: GASTROOESOPHAGEAL REFLUX DISEASE

REACTIONS (7)
  - BILIARY DYSKINESIA [None]
  - DRUG INEFFECTIVE [None]
  - ELECTROCARDIOGRAM ABNORMAL [None]
  - GALLBLADDER OPERATION [None]
  - HYPERTENSION [None]
  - PALPITATIONS [None]
  - STRESS [None]
